FAERS Safety Report 9716466 (Version 1)
Quarter: 2013Q4

REPORT INFORMATION
  Report Type: Other
  Country: US (occurrence: US)
  Receive Date: 20131127
  Receipt Date: 20131127
  Transmission Date: 20140711
  Serious: No
  Sender: FDA-Public Use
  Company Number: US-ENDO PHARMACEUTICALS INC.-PROP20120050

PATIENT
  Age: 62 Year
  Sex: Male
  Weight: 98.06 kg

DRUGS (10)
  1. PROPOXYPHENE NAPSYLATE/ACETAMINOPHEN TABLETS [Suspect]
     Indication: PRODUCT USED FOR UNKNOWN INDICATION
     Dosage: UNKNOWN
     Route: 048
     Dates: start: 20081230
  2. PROPOXYPHENE NAPSYLATE/ACETAMINOPHEN TABLETS [Suspect]
     Dosage: UNKNOWN
     Route: 048
     Dates: start: 200908
  3. DIOVAN [Concomitant]
     Route: 048
  4. MULTIPLE VITAMIN [Concomitant]
     Route: 048
  5. LASIX [Concomitant]
     Route: 048
  6. KLOR-CON [Concomitant]
     Dosage: 1 PACKET IN WATER
     Route: 048
  7. THIAMINE HCL [Concomitant]
  8. FOLIC ACID [Concomitant]
     Route: 048
  9. HYDROCODONE ACETAMINOPHEN [Concomitant]
     Route: 048
  10. PROTONIX [Concomitant]
     Route: 048

REACTIONS (3)
  - Cardiac failure congestive [Unknown]
  - Heart rate irregular [Not Recovered/Not Resolved]
  - Gastrointestinal haemorrhage [Unknown]
